FAERS Safety Report 17882378 (Version 1)
Quarter: 2020Q2

REPORT INFORMATION
  Report Type: Report from Study
  Country: None (occurrence: AU)
  Receive Date: 20200610
  Receipt Date: 20200610
  Transmission Date: 20200714
  Serious: Yes (Hospitalization)
  Sender: FDA-Public Use
  Company Number: AU-ABBVIE-20K-008-3434668-00

PATIENT
  Age: 73 Year
  Sex: Female

DRUGS (1)
  1. DUODOPA [Suspect]
     Active Substance: CARBIDOPA\LEVODOPA
     Indication: PARKINSON^S DISEASE
     Dosage: 16 HRS
     Route: 050
     Dates: start: 20190527

REACTIONS (18)
  - Nausea [Unknown]
  - Stoma site pain [Unknown]
  - Feeling abnormal [Unknown]
  - Tremor [Recovered/Resolved]
  - Headache [Unknown]
  - Dysarthria [Unknown]
  - On and off phenomenon [Unknown]
  - Stoma site discharge [Unknown]
  - Urinary tract infection [Unknown]
  - Aphasia [Unknown]
  - Stoma site haemorrhage [Unknown]
  - Dizziness [Unknown]
  - Abdominal pain [Unknown]
  - Vision blurred [Unknown]
  - Abdominal distension [Unknown]
  - Stoma site infection [Unknown]
  - Confusional state [Unknown]
  - Gastrointestinal wall thickening [Unknown]

NARRATIVE: CASE EVENT DATE: 2020
